FAERS Safety Report 25375276 (Version 1)
Quarter: 2025Q2

REPORT INFORMATION
  Report Type: Spontaneous
  Country: US (occurrence: None)
  Receive Date: 20250529
  Receipt Date: 20250529
  Transmission Date: 20250716
  Serious: Yes (Other)
  Sender: INCYTE
  Company Number: US-INCYTE CORPORATION-2025IN005769

PATIENT
  Age: 76 Year
  Weight: 67.12 kg

DRUGS (1)
  1. JAKAFI [Suspect]
     Active Substance: RUXOLITINIB
     Indication: Polycythaemia vera
     Dosage: 10 MILLIGRAM, BID

REACTIONS (4)
  - Skin cancer [Unknown]
  - Hordeolum [Recovered/Resolved]
  - Bronchitis [Recovering/Resolving]
  - Dyspnoea [Unknown]
